FAERS Safety Report 6945973-8 (Version None)
Quarter: 2010Q3

REPORT INFORMATION
  Report Type: 
  Country: None (occurrence: None)
  Receive Date: 20100827
  Receipt Date: 20100824
  Transmission Date: 20110219
  Serious: Yes (Hospitalization)
  Sender: FDA-Public Use
  Company Number: US-CEPHALON-2010003025

PATIENT
  Sex: Female
  Weight: 79 kg

DRUGS (10)
  1. NUVIGIL [Suspect]
     Indication: SLEEP APNOEA SYNDROME
     Route: 048
     Dates: start: 20100513, end: 20100520
  2. NUVIGIL [Suspect]
     Route: 048
     Dates: start: 20100520
  3. METFORMIN [Concomitant]
     Indication: TYPE 2 DIABETES MELLITUS
     Dates: start: 20000101
  4. LISINOPRIL [Concomitant]
     Indication: HYPERTENSION
     Dates: start: 20000101
  5. WARFARIN SODIUM [Concomitant]
     Indication: PROPHYLAXIS
     Dates: start: 20090601
  6. SIMVASTATIN [Concomitant]
     Indication: BLOOD CHOLESTEROL INCREASED
     Dates: start: 20050101
  7. NORVASC [Concomitant]
     Indication: HYPERTENSION
     Dates: start: 20050101
  8. BENADRYL [Concomitant]
     Indication: SLEEP DISORDER
  9. BENADRYL [Concomitant]
     Indication: HYPERSENSITIVITY
  10. GLYBURIDE [Concomitant]
     Dates: start: 20000101

REACTIONS (1)
  - CEREBROVASCULAR ACCIDENT [None]
